FAERS Safety Report 4734604-3 (Version None)
Quarter: 2005Q3

REPORT INFORMATION
  Report Type: 
  Country: None (occurrence: None)
  Receive Date: 20050804
  Receipt Date: 20050721
  Transmission Date: 20060218
  Serious: Yes (Life-Threatening)
  Sender: FDA-Public Use
  Company Number: 2005AP04022

PATIENT
  Age: 28 Year
  Sex: Female
  Weight: 55 kg

DRUGS (5)
  1. MARCAINE HEAVY [Suspect]
     Indication: CAESAREAN SECTION
     Route: 037
     Dates: start: 20050712, end: 20050712
  2. MORPHINE [Suspect]
     Route: 037
     Dates: start: 20050712, end: 20050712
  3. SYNTOCINON [Concomitant]
     Indication: UTERINE HYPERTONUS
     Route: 042
     Dates: start: 20050712, end: 20050712
  4. METHERGINE [Concomitant]
     Indication: UTERINE HYPERTONUS
     Route: 042
     Dates: start: 20050712, end: 20050712
  5. NEOSTIGMINE [Concomitant]
     Indication: MUSCLE RELAXANT THERAPY
     Route: 042
     Dates: start: 20050712, end: 20050712

REACTIONS (5)
  - BRADYCARDIA [None]
  - CONVULSION [None]
  - GAZE PALSY [None]
  - SINUS TACHYCARDIA [None]
  - TONIC CONVULSION [None]
